FAERS Safety Report 26004654 (Version 2)
Quarter: 2025Q4

REPORT INFORMATION
  Report Type: Spontaneous
  Country: JP (occurrence: JP)
  Receive Date: 20251106
  Receipt Date: 20251204
  Transmission Date: 20260118
  Serious: Yes (Hospitalization, Other)
  Sender: MERCK SHARP & DOHME LLC
  Company Number: JP-009507513-2343761

PATIENT
  Age: 71 Year
  Sex: Male
  Weight: 65 kg

DRUGS (2)
  1. KEYTRUDA [Suspect]
     Active Substance: PEMBROLIZUMAB
     Indication: Transitional cell cancer of the renal pelvis and ureter
     Dosage: 8 COURSES
     Route: 041
     Dates: start: 20250331, end: 2025
  2. PADCEV [Suspect]
     Active Substance: ENFORTUMAB VEDOTIN-EJFV
     Indication: Transitional cell cancer of the renal pelvis and ureter
     Route: 041
     Dates: start: 20250331, end: 2025

REACTIONS (7)
  - Still^s disease [Recovering/Resolving]
  - Inflammatory marker increased [Unknown]
  - Viral tonsillitis [Unknown]
  - Neuropathy peripheral [Unknown]
  - Pyrexia [Recovered/Resolved]
  - Oropharyngeal pain [Unknown]
  - Arthralgia [Unknown]

NARRATIVE: CASE EVENT DATE: 20250722
